FAERS Safety Report 10096577 (Version 2)
Quarter: 2014Q4

REPORT INFORMATION
  Report Type: Spontaneous
  Country: US (occurrence: US)
  Receive Date: 20140422
  Receipt Date: 20141201
  Transmission Date: 20150528
  Serious: Yes (Hospitalization, Other)
  Sender: FDA-Public Use
  Company Number: US-BAYER-2014-057649

PATIENT
  Age: 39 Year
  Sex: Female
  Weight: 61.22 kg

DRUGS (7)
  1. ULTRAM [Concomitant]
     Active Substance: TRAMADOL HYDROCHLORIDE
     Indication: PAIN
  2. COUMADIN [Suspect]
     Active Substance: WARFARIN SODIUM
     Indication: PULMONARY EMBOLISM
  3. YASMIN [Suspect]
     Active Substance: DROSPIRENONE\ETHINYL ESTRADIOL
     Dosage: UNK
     Dates: start: 200903, end: 201006
  4. FOLTX [Concomitant]
     Active Substance: CYANOCOBALAMIN CO-57\FOLIC ACID\PYRIDOXINE HYDROCHLORIDE
  5. COUMADIN [Suspect]
     Active Substance: WARFARIN SODIUM
     Indication: DEEP VEIN THROMBOSIS
  6. NIFEREX [Concomitant]
     Active Substance: IRON\POLYSACCHARIDES
  7. COUMADIN [Suspect]
     Active Substance: WARFARIN SODIUM
     Indication: CEREBROVASCULAR ACCIDENT

REACTIONS (9)
  - Thrombosis [None]
  - Emotional distress [None]
  - Cognitive disorder [None]
  - Cerebrovascular accident [None]
  - Pulmonary embolism [None]
  - Injury [None]
  - Deep vein thrombosis [None]
  - Pain [None]
  - Fear of disease [None]

NARRATIVE: CASE EVENT DATE: 20100531
